FAERS Safety Report 13299809 (Version 2)
Quarter: 2017Q1

REPORT INFORMATION
  Report Type: Spontaneous
  Country: FR (occurrence: FR)
  Receive Date: 20170306
  Receipt Date: 20170313
  Transmission Date: 20170428
  Serious: Yes (Hospitalization, Other)
  Sender: FDA-Public Use
  Company Number: FR-PFIZER INC-2017037453

PATIENT
  Age: 70 Year
  Sex: Male

DRUGS (2)
  1. NAVELBINE [Concomitant]
     Active Substance: VINORELBINE TARTRATE
     Dosage: 120 MG, SINGLE
     Route: 048
     Dates: start: 20170109, end: 20170109
  2. ZITHROMAX [Suspect]
     Active Substance: AZITHROMYCIN DIHYDRATE
     Indication: SEPSIS SYNDROME
     Dosage: 250 MG, 2X/DAY
     Route: 048
     Dates: start: 20170106, end: 20170109

REACTIONS (1)
  - Hepatocellular injury [Unknown]

NARRATIVE: CASE EVENT DATE: 20170111
